FAERS Safety Report 15101508 (Version 1)
Quarter: 2018Q3

REPORT INFORMATION
  Report Type: Spontaneous
  Country: FR (occurrence: FR)
  Receive Date: 20180703
  Receipt Date: 20180703
  Transmission Date: 20181010
  Serious: Yes (Death, Life-Threatening, Other)
  Sender: FDA-Public Use
  Company Number: FR-GLAXOSMITHKLINE-FR2018116075

PATIENT
  Age: 35 Year
  Sex: Female
  Weight: 105 kg

DRUGS (2)
  1. NAROPEINE [Suspect]
     Active Substance: ROPIVACAINE HYDROCHLORIDE
     Indication: NEUROMUSCULAR BLOCKADE
     Dosage: 110 MG, UNK
     Route: 053
  2. CEFUROXIME SODIUM. [Suspect]
     Active Substance: CEFUROXIME SODIUM
     Indication: ANTIBIOTIC PROPHYLAXIS
     Dosage: 6 G, UNK
     Route: 042

REACTIONS (5)
  - Coma [Not Recovered/Not Resolved]
  - Altered state of consciousness [Recovering/Resolving]
  - Shock [Fatal]
  - Hypotension [Recovering/Resolving]
  - Multiple organ dysfunction syndrome [Fatal]

NARRATIVE: CASE EVENT DATE: 20180507
